FAERS Safety Report 13385470 (Version 1)
Quarter: 2017Q1

REPORT INFORMATION
  Report Type: Report from Study
  Country: CA (occurrence: CA)
  Receive Date: 20170330
  Receipt Date: 20170330
  Transmission Date: 20170429
  Serious: Yes (Other)
  Sender: FDA-Public Use
  Company Number: CA-ROCHE-1913123

PATIENT
  Sex: Female

DRUGS (13)
  1. NORTRIPTYLINE [Concomitant]
     Active Substance: NORTRIPTYLINE
  2. RITUXAN [Suspect]
     Active Substance: RITUXIMAB
     Indication: RHEUMATOID ARTHRITIS
     Route: 042
     Dates: start: 20160831
  3. TYLENOL WITH CODEINE [Concomitant]
     Active Substance: ACETAMINOPHEN\CODEINE PHOSPHATE
  4. FUROSEMIDE. [Concomitant]
     Active Substance: FUROSEMIDE
  5. GABAPENTIN. [Concomitant]
     Active Substance: GABAPENTIN
  6. ZOPICLONE [Concomitant]
     Active Substance: ZOPICLONE
  7. BACLOFEN. [Concomitant]
     Active Substance: BACLOFEN
  8. PLAQUENIL [Concomitant]
     Active Substance: HYDROXYCHLOROQUINE SULFATE
  9. PREDNISONE. [Concomitant]
     Active Substance: PREDNISONE
  10. ESOMEPRAZOLE [Concomitant]
     Active Substance: ESOMEPRAZOLE
  11. PREMARIN [Concomitant]
     Active Substance: ESTROGENS, CONJUGATED
  12. RABEPRAZOLE [Concomitant]
     Active Substance: RABEPRAZOLE
  13. BIOTIN [Concomitant]
     Active Substance: BIOTIN

REACTIONS (2)
  - Gastrooesophageal reflux disease [Unknown]
  - Diarrhoea [Unknown]
